FAERS Safety Report 8863851 (Version 1)
Quarter: 2012Q4

REPORT INFORMATION
  Report Type: 
  Country: US (occurrence: US)
  Receive Date: 20121024
  Receipt Date: 20121024
  Transmission Date: 20130627
  Serious: No
  Sender: FDA-Public Use
  Company Number: US-AMGEN-USASP2011064472

PATIENT
  Age: 57 Year
  Sex: Male
  Weight: 96.6 kg

DRUGS (5)
  1. ENBREL [Suspect]
     Indication: PRODUCT USED FOR UNKNOWN INDICATION
     Dosage: 50 mg, UNK
     Route: 058
  2. MULTIVITAMIN                       /00097801/ [Concomitant]
     Route: 048
  3. PENTASA [Concomitant]
     Dosage: 250 mg, UNK
     Route: 048
  4. CALCIUM +D                         /00188401/ [Concomitant]
     Route: 048
  5. VITAMIN D /00107901/ [Concomitant]
     Dosage: 400 IU, UNK
     Route: 048

REACTIONS (3)
  - Cyst [Unknown]
  - Injection site extravasation [Unknown]
  - Injection site pain [Unknown]
